FAERS Safety Report 19091076 (Version 2)
Quarter: 2021Q2

REPORT INFORMATION
  Report Type: Spontaneous
  Country: IT (occurrence: IT)
  Receive Date: 20210405
  Receipt Date: 20210416
  Transmission Date: 20210717
  Serious: Yes (Other)
  Sender: FDA-Public Use
  Company Number: IT-AUROBINDO-AUR-APL-2020-061900

PATIENT
  Age: 39 Year
  Sex: Male

DRUGS (15)
  1. ABACAVIR. [Suspect]
     Active Substance: ABACAVIR
     Indication: HIV INFECTION
     Dosage: UNK
  2. ZIDOVUDINE. [Suspect]
     Active Substance: ZIDOVUDINE
     Indication: HIV INFECTION
     Dosage: UNK 39 WEEKS
     Route: 065
  3. DARUNAVIR [Interacting]
     Active Substance: DARUNAVIR
     Dosage: 1 UNK, ONCE A DAY (UNK, QD)
     Route: 065
  4. DOLUTEGRAVIR [Concomitant]
     Active Substance: DOLUTEGRAVIR
     Indication: HIV INFECTION
     Dosage: UNK 2 WEEKS
     Route: 065
  5. DARUNAVIR [Interacting]
     Active Substance: DARUNAVIR
     Indication: HIV INFECTION
     Dosage: UNK (BID AND QD)
     Route: 065
  6. DARUNAVIR [Interacting]
     Active Substance: DARUNAVIR
     Dosage: 2 UNK, ONCE A DAY (UNK, BID)
     Route: 065
  7. TENOFOVIR DISOPROXIL [Suspect]
     Active Substance: TENOFOVIR DISOPROXIL
     Indication: HIV INFECTION
     Dosage: UNK
     Route: 065
  8. MARAVIROC [Suspect]
     Active Substance: MARAVIROC
     Indication: HIV INFECTION
     Dosage: UNK 8 WEEKS
     Route: 065
  9. LAMIVUDINE. [Suspect]
     Active Substance: LAMIVUDINE
     Indication: HIV INFECTION
     Dosage: UNK
     Route: 065
  10. RALTEGRAVIR. [Suspect]
     Active Substance: RALTEGRAVIR
     Indication: HIV INFECTION
     Dosage: UNK 12 WEEKS
     Route: 065
  11. RITONAVIR. [Interacting]
     Active Substance: RITONAVIR
     Dosage: 2 UNK, ONCE A DAY (UNK, BID)
     Route: 065
  12. EMTRICITABINE [Suspect]
     Active Substance: EMTRICITABINE
     Indication: HIV INFECTION
     Dosage: UNK
     Route: 065
  13. RITONAVIR. [Interacting]
     Active Substance: RITONAVIR
     Indication: HIV INFECTION
     Dosage: UNK (BID AND QD)
     Route: 065
  14. RITONAVIR. [Interacting]
     Active Substance: RITONAVIR
     Dosage: 1 UNK, ONCE A DAY (UNK, QD)
     Route: 065
  15. RALTEGRAVIR POTASSIUM [Interacting]
     Active Substance: RALTEGRAVIR POTASSIUM
     Indication: HIV INFECTION
     Dosage: UNK
     Route: 048

REACTIONS (4)
  - Labelled drug-drug interaction issue [Unknown]
  - CSF HIV escape syndrome [Recovering/Resolving]
  - Drug ineffective [Unknown]
  - Treatment noncompliance [Unknown]
